FAERS Safety Report 21590324 (Version 2)
Quarter: 2023Q1

REPORT INFORMATION
  Report Type: Report from Study
  Country: US (occurrence: US)
  Receive Date: 20221114
  Receipt Date: 20230124
  Transmission Date: 20230418
  Serious: No
  Sender: FDA-Public Use
  Company Number: US-ABBVIE-22K-163-4474878-00

PATIENT
  Sex: Male

DRUGS (2)
  1. IBRUTINIB [Suspect]
     Active Substance: IBRUTINIB
     Indication: Extranodal marginal zone B-cell lymphoma (MALT type)
     Route: 048
     Dates: start: 20220505
  2. IBRUTINIB [Suspect]
     Active Substance: IBRUTINIB
     Indication: Extranodal marginal zone B-cell lymphoma (MALT type)
     Route: 048

REACTIONS (6)
  - Drug hypersensitivity [Unknown]
  - Chromaturia [Unknown]
  - Swelling [Unknown]
  - Blood test abnormal [Unknown]
  - Peripheral swelling [Recovering/Resolving]
  - Localised infection [Unknown]

NARRATIVE: CASE EVENT DATE: 20220101
